FAERS Safety Report 9286928 (Version 1)
Quarter: 2013Q2

REPORT INFORMATION
  Report Type: Spontaneous
  Country: US (occurrence: US)
  Receive Date: 20130513
  Receipt Date: 20130513
  Transmission Date: 20140414
  Serious: No
  Sender: FDA-Public Use
  Company Number: US-ASTRAZENECA-2013SE31368

PATIENT
  Sex: Male

DRUGS (5)
  1. BRILINTA [Suspect]
     Indication: ACUTE CORONARY SYNDROME
     Route: 048
  2. BRILINTA [Suspect]
     Indication: ACUTE CORONARY SYNDROME
     Dosage: CUTTING TABLET IN HALF AND TAKING HALF IN AM AND HALF IN PM
     Route: 048
  3. BRILINTA [Suspect]
     Indication: ACUTE CORONARY SYNDROME
     Route: 048
     Dates: start: 20130419
  4. PRADAXA [Concomitant]
  5. ASA [Concomitant]

REACTIONS (7)
  - Blood disorder [Unknown]
  - Chest pain [Unknown]
  - Fatigue [Unknown]
  - Heart rate increased [Unknown]
  - Throat irritation [Unknown]
  - Haemorrhage [Unknown]
  - Off label use [Unknown]
